FAERS Safety Report 25061148 (Version 2)
Quarter: 2025Q2

REPORT INFORMATION
  Report Type: Report from Study
  Country: CA (occurrence: CA)
  Receive Date: 20250310
  Receipt Date: 20250414
  Transmission Date: 20250717
  Serious: Yes (Hospitalization)
  Sender: ABBVIE
  Company Number: CA-ABBVIE-6164074

PATIENT
  Age: 61 Year
  Sex: Male

DRUGS (2)
  1. SKYRIZI [Suspect]
     Active Substance: RISANKIZUMAB-RZAA
     Indication: Crohn^s disease
     Route: 058
     Dates: start: 20241010, end: 20250102
  2. SKYRIZI [Suspect]
     Active Substance: RISANKIZUMAB-RZAA
     Route: 058

REACTIONS (9)
  - Eye pain [Unknown]
  - Adverse reaction [Recovering/Resolving]
  - Weight decreased [Unknown]
  - Liver injury [Recovered/Resolved]
  - Ocular icterus [Unknown]
  - Dilatation intrahepatic duct acquired [Unknown]
  - Hepatic cyst [Unknown]
  - Jaundice [Unknown]
  - Blood bilirubin increased [Recovered/Resolved]

NARRATIVE: CASE EVENT DATE: 20241101
